FAERS Safety Report 4457512-4 (Version None)
Quarter: 2004Q3

REPORT INFORMATION
  Report Type: 
  Country: None (occurrence: None)
  Receive Date: 20040831
  Receipt Date: 20040723
  Transmission Date: 20050211
  Serious: Yes (Hospitalization)
  Sender: FDA-Public Use
  Company Number: US-JNJFOC-20040603235

PATIENT
  Age: 47 Year
  Sex: Male
  Weight: 61.6892 kg

DRUGS (9)
  1. RISPERDAL [Suspect]
     Indication: BIPOLAR DISORDER
     Dosage: 25 MG, 1 IN 2 WEEK, INTR-MUSCULAR
     Route: 030
     Dates: start: 20040315, end: 20040427
  2. RISPERDAL [Suspect]
     Indication: BIPOLAR DISORDER
     Dosage: 1 MG, 2 MG, 2 IN 1 DAY
     Dates: start: 20040418, end: 20040425
  3. RISPERDAL [Suspect]
     Indication: BIPOLAR DISORDER
     Dosage: 1 MG, 2 MG, 2 IN 1 DAY
     Dates: start: 20040308
  4. RISPERDAL [Suspect]
     Indication: BIPOLAR DISORDER
     Dosage: 1 MG, 2 MG, 2 IN 1 DAY
     Dates: start: 20040311
  5. PROLIXIN D (FLUPHENAZINE DECONATE) [Concomitant]
  6. SEROQUEL (QUETIAPINE FUMURATE) [Concomitant]
  7. ZOLOFT [Concomitant]
  8. GLUCOPHAGE [Concomitant]
  9. INSULIN [Concomitant]

REACTIONS (2)
  - BIPOLAR DISORDER [None]
  - DRUG LEVEL BELOW THERAPEUTIC [None]
